FAERS Safety Report 7936339-2 (Version None)
Quarter: 2011Q4

REPORT INFORMATION
  Report Type: 
  Country: None (occurrence: None)
  Receive Date: 20111121
  Receipt Date: 20111109
  Transmission Date: 20120403
  Serious: Yes (Other)
  Sender: FDA-Public Use
  Company Number: 2011MA016455

PATIENT
  Age: 52 Year
  Sex: Male

DRUGS (2)
  1. DICLOFENAC SODIUM [Suspect]
     Dates: start: 20110908
  2. PIROXICAM [Concomitant]

REACTIONS (2)
  - DISINHIBITION [None]
  - ANTISOCIAL BEHAVIOUR [None]
